FAERS Safety Report 10230808 (Version 1)
Quarter: 2014Q2

REPORT INFORMATION
  Report Type: Spontaneous
  Country: US (occurrence: None)
  Receive Date: 20140610
  Receipt Date: 20140610
  Transmission Date: 20141212
  Serious: No
  Sender: FDA-Public Use
  Company Number: None

PATIENT
  Age: 44 Year
  Sex: Female
  Weight: 106.14 kg

DRUGS (2)
  1. CYMBALTA [Suspect]
     Indication: FIBROMYALGIA
     Dosage: 1 TABLET TWICE DAILY TAKEN BY MOUTH
     Route: 048
     Dates: start: 20140507, end: 20140602
  2. CYMBALTA [Suspect]
     Dosage: 1 TABLET TWICE DAILY TAKEN BY MOUTH
     Route: 048
     Dates: start: 20140507, end: 20140602

REACTIONS (8)
  - Headache [None]
  - Dyspnoea [None]
  - Swollen tongue [None]
  - Skin warm [None]
  - Erythema [None]
  - Rash [None]
  - Tongue blistering [None]
  - Oral mucosal blistering [None]
